FAERS Safety Report 5939628-6 (Version None)
Quarter: 2008Q4

REPORT INFORMATION
  Report Type: 
  Country: None (occurrence: None)
  Receive Date: 20081030
  Receipt Date: 20081030
  Transmission Date: 20090506
  Serious: Yes (Hospitalization)
  Sender: FDA-Public Use
  Company Number: None

PATIENT
  Age: 34 Year
  Sex: Female

DRUGS (6)
  1. IMURAN [Suspect]
     Dates: start: 20070324, end: 20070403
  2. PREDNISONE TAB [Concomitant]
  3. CIPROFLOXACIN [Concomitant]
  4. FLAGYL [Concomitant]
  5. TYLENOL W/ CODEINE [Concomitant]
  6. ACTIGALL [Concomitant]

REACTIONS (6)
  - ALANINE AMINOTRANSFERASE INCREASED [None]
  - ASPARTATE AMINOTRANSFERASE INCREASED [None]
  - DIZZINESS [None]
  - HEPATOTOXICITY [None]
  - LIVER INJURY [None]
  - RASH [None]
